FAERS Safety Report 7438505-1 (Version None)
Quarter: 2011Q2

REPORT INFORMATION
  Report Type: 
  Country: None (occurrence: None)
  Receive Date: 20110426
  Receipt Date: 20110418
  Transmission Date: 20111010
  Serious: Yes (Hospitalization)
  Sender: FDA-Public Use
  Company Number: IT-BAXTER-2011BH011697

PATIENT
  Age: 80 Year
  Sex: Female

DRUGS (7)
  1. DELTACORTENE [Suspect]
     Indication: NON-HODGKIN'S LYMPHOMA
     Route: 048
     Dates: start: 20041204, end: 20101207
  2. ALLOPURINOL [Concomitant]
     Indication: HYPERURICAEMIA
     Route: 048
     Dates: start: 20101110, end: 20110210
  3. DOXORUBICIN GENERIC [Suspect]
     Indication: NON-HODGKIN'S LYMPHOMA
     Route: 040
     Dates: start: 20101203, end: 20101203
  4. VINCRISTINE SULFATE [Suspect]
     Indication: NON-HODGKIN'S LYMPHOMA
     Route: 040
     Dates: start: 20101203, end: 20101203
  5. SELEPARINA [Concomitant]
     Indication: THROMBOSIS PROPHYLAXIS
     Route: 058
     Dates: start: 20101110, end: 20110210
  6. CYCLOPHOSPHAMIDE [Suspect]
     Indication: NON-HODGKIN'S LYMPHOMA
     Route: 040
     Dates: start: 20101203, end: 20101203
  7. EUTIROX [Concomitant]
     Indication: HYPOTHYROIDISM
     Route: 048
     Dates: start: 20101110, end: 20110210

REACTIONS (3)
  - ABDOMINAL WALL ABSCESS [None]
  - NEUTROPENIA [None]
  - DYSPNOEA [None]
